FAERS Safety Report 18391005 (Version 1)
Quarter: 2020Q4

REPORT INFORMATION
  Report Type: Report from Study
  Country: None (occurrence: AR)
  Receive Date: 20201015
  Receipt Date: 20201015
  Transmission Date: 20210114
  Serious: Yes (Hospitalization, Other)
  Sender: FDA-Public Use
  Company Number: AR-ABBVIE-20K-007-3527032-00

PATIENT
  Age: 28 Year
  Sex: Female

DRUGS (1)
  1. HUMIRA [Suspect]
     Active Substance: ADALIMUMAB
     Indication: RHEUMATOID ARTHRITIS
     Route: 058
     Dates: start: 20180903

REACTIONS (4)
  - Rheumatoid arthritis [Recovering/Resolving]
  - Maternal exposure during pregnancy [Unknown]
  - Pain [Recovering/Resolving]
  - Abortion spontaneous [Unknown]

NARRATIVE: CASE EVENT DATE: 202009
